FAERS Safety Report 6439975-8 (Version None)
Quarter: 2009Q4

REPORT INFORMATION
  Report Type: 
  Country: None (occurrence: None)
  Receive Date: 20091112
  Receipt Date: 20091112
  Transmission Date: 20100525
  Serious: No
  Sender: FDA-Public Use
  Company Number: None

PATIENT
  Age: 58 Year
  Sex: Female
  Weight: 72.5755 kg

DRUGS (1)
  1. ACTONEL [Suspect]
     Indication: OSTEOPOROSIS
     Dosage: 1 ORANGE PILL ONCE A WEEK; I TOOK ACTONEL FOR OVER 10 YRS

REACTIONS (4)
  - HYPOAESTHESIA ORAL [None]
  - OSTEONECROSIS [None]
  - POSTOPERATIVE WOUND INFECTION [None]
  - TOOTH ABSCESS [None]
